FAERS Safety Report 9057282 (Version 1)
Quarter: 2013Q1

REPORT INFORMATION
  Report Type: Report from Study
  Country: JP (occurrence: JP)
  Receive Date: 20130131
  Receipt Date: 20130131
  Transmission Date: 20140127
  Serious: Yes (Other)
  Sender: FDA-Public Use
  Company Number: JP-GLAXOSMITHKLINE-B0860458A

PATIENT
  Age: 76 None
  Sex: Male
  Weight: 50 kg

DRUGS (7)
  1. SERETIDE (50MCG/250MCG) [Suspect]
     Indication: EMPHYSEMA
     Dosage: 250MCG TWICE PER DAY
     Route: 055
     Dates: start: 20091130
  2. BLOPRESS [Concomitant]
     Route: 048
  3. PARIET [Concomitant]
     Route: 048
  4. BONALON [Concomitant]
     Route: 048
  5. SPIRIVA [Concomitant]
     Indication: EMPHYSEMA
     Route: 055
     Dates: start: 20101222
  6. THYRADIN S [Concomitant]
     Route: 048
  7. MUCODYNE [Concomitant]
     Indication: EMPHYSEMA
     Route: 048
     Dates: start: 20100610

REACTIONS (3)
  - Pneumonia bacterial [Recovering/Resolving]
  - Sputum purulent [Unknown]
  - Pyrexia [Unknown]
